FAERS Safety Report 8364783-0 (Version None)
Quarter: 2012Q2

REPORT INFORMATION
  Report Type: 
  Country: None (occurrence: None)
  Receive Date: 20120516
  Receipt Date: 20120509
  Transmission Date: 20120825
  Serious: Yes (Hospitalization, Other)
  Sender: FDA-Public Use
  Company Number: PL-UCBSA-056184

PATIENT
  Age: 41 Year
  Sex: Male
  Weight: 75 kg

DRUGS (3)
  1. CIMZIA [Suspect]
     Dosage: LAST DOSE:07/FEB/2012
     Dates: start: 20040901
  2. METEOSPASMYL [Concomitant]
     Indication: CROHN'S DISEASE
     Route: 048
     Dates: start: 20030801
  3. MESALAMINE [Concomitant]
     Indication: CROHN'S DISEASE
     Dosage: DOSE:3 GM    FREQUENCY:3X1.0
     Route: 048
     Dates: start: 20020201

REACTIONS (1)
  - ABDOMINAL ABSCESS [None]
